FAERS Safety Report 12713242 (Version 1)
Quarter: 2016Q3

REPORT INFORMATION
  Report Type: Spontaneous
  Country: CN (occurrence: CN)
  Receive Date: 20160902
  Receipt Date: 20160902
  Transmission Date: 20161109
  Serious: Yes (Hospitalization, Other)
  Sender: FDA-Public Use
  Company Number: CN-GILEAD-2016-0231710

PATIENT
  Age: 43 Year
  Sex: Male

DRUGS (2)
  1. ADEFOVIR DIPIVOXIL. [Suspect]
     Active Substance: ADEFOVIR DIPIVOXIL
     Indication: HEPATITIS B
     Dosage: 10 MG, QD
     Route: 065
     Dates: start: 2006
  2. ENTECAVIR. [Concomitant]
     Active Substance: ENTECAVIR
     Indication: HEPATITIS B
     Dosage: 0.5 MG, QD
     Dates: start: 201403

REACTIONS (18)
  - Bone marrow oedema [Unknown]
  - Protein urine present [Unknown]
  - Glucose urine present [Unknown]
  - Chest pain [Recovering/Resolving]
  - Osteoporosis [Unknown]
  - Urine phosphorus increased [Unknown]
  - Back pain [Recovering/Resolving]
  - Blood phosphorus decreased [Unknown]
  - Body height decreased [Unknown]
  - Rib fracture [Unknown]
  - Fanconi syndrome [Unknown]
  - Ankylosing spondylitis [Unknown]
  - Tenderness [Unknown]
  - Urine potassium increased [Unknown]
  - Osteomalacia [Unknown]
  - Multiple fractures [Unknown]
  - Posture abnormal [Unknown]
  - Renal tubular dysfunction [Unknown]

NARRATIVE: CASE EVENT DATE: 2011
